FAERS Safety Report 7520871-X (Version None)
Quarter: 2011Q2

REPORT INFORMATION
  Report Type: 
  Country: None (occurrence: None)
  Receive Date: 20110603
  Receipt Date: 20101116
  Transmission Date: 20111010
  Serious: Yes (Other)
  Sender: FDA-Public Use
  Company Number: US-BAYER-201023571NA

PATIENT
  Age: 39 Year
  Sex: Female
  Weight: 72.727 kg

DRUGS (8)
  1. LEVOTHYROXINE SODIUM [Concomitant]
     Indication: HYPOTHYROIDISM
     Route: 048
     Dates: start: 20040101
  2. CLARITIN [Concomitant]
     Indication: RHINITIS ALLERGIC
     Route: 048
     Dates: start: 20080101
  3. YASMIN [Suspect]
     Route: 048
     Dates: start: 20071029, end: 20080510
  4. YAZ [Suspect]
     Indication: PRODUCT USED FOR UNKNOWN INDICATION
     Route: 048
     Dates: start: 20061116, end: 20061213
  5. DROSPIRENONE AND ETHINYL ESTRADIOL [Suspect]
     Indication: PRODUCT USED FOR UNKNOWN INDICATION
     Route: 048
     Dates: start: 20080308, end: 20090304
  6. SPIRIVA [Concomitant]
     Indication: BRONCHITIS
  7. SINGULAIR [Concomitant]
  8. YASMIN [Suspect]
     Indication: ORAL CONTRACEPTION
     Route: 048
     Dates: start: 20060127, end: 20060914

REACTIONS (4)
  - PALPITATIONS [None]
  - ARRHYTHMIA [None]
  - DYSPNOEA [None]
  - TACHYCARDIA [None]
